FAERS Safety Report 5928723-3 (Version None)
Quarter: 2008Q4

REPORT INFORMATION
  Report Type: 
  Country: None (occurrence: None)
  Receive Date: 20081023
  Receipt Date: 20081015
  Transmission Date: 20090506
  Serious: Yes (Hospitalization)
  Sender: FDA-Public Use
  Company Number: US-AMGEN-QUU307697

PATIENT
  Sex: Female
  Weight: 61.7 kg

DRUGS (12)
  1. ENBREL [Suspect]
     Indication: RHEUMATOID ARTHRITIS
     Route: 058
     Dates: start: 20070617
  2. EUFLEXXA [Suspect]
     Route: 050
     Dates: start: 20080806
  3. PLAQUENIL [Concomitant]
     Route: 048
     Dates: start: 19850101
  4. WELLBUTRIN [Concomitant]
     Dates: start: 20080813
  5. FLONASE [Concomitant]
     Dates: start: 20080806
  6. METFORMIN HYDROCHLORIDE [Concomitant]
     Route: 048
  7. PRILOSEC [Concomitant]
     Route: 048
  8. XALATAN [Concomitant]
  9. PROGESTERONE [Concomitant]
  10. LISINOPRIL [Concomitant]
  11. IBUPROFEN [Concomitant]
  12. PREDNISONE TAB [Concomitant]
     Dates: start: 19890101

REACTIONS (15)
  - ARTHRALGIA [None]
  - ARTHRITIS [None]
  - BONE DENSITY DECREASED [None]
  - CHEST PAIN [None]
  - DEHYDRATION [None]
  - DIARRHOEA [None]
  - FINGER DEFORMITY [None]
  - FOOT DEFORMITY [None]
  - HEADACHE [None]
  - JOINT SWELLING [None]
  - MUSCULAR WEAKNESS [None]
  - MYALGIA [None]
  - OSTEOARTHRITIS [None]
  - SYNOVITIS [None]
  - VOMITING [None]
